FAERS Safety Report 7608226-0 (Version None)
Quarter: 2011Q3

REPORT INFORMATION
  Report Type: 
  Country: None (occurrence: None)
  Receive Date: 20110706
  Receipt Date: 20110623
  Transmission Date: 20111222
  Serious: Yes (Life-Threatening, Hospitalization)
  Sender: FDA-Public Use
  Company Number: 2011002059

PATIENT
  Age: 72 Year
  Sex: Female

DRUGS (7)
  1. PROMAC (POLAPREZINC) [Concomitant]
  2. DUROTEP (FENTANYL) [Concomitant]
  3. URSO (URSODEXOYCHOLIC ACID) [Concomitant]
  4. TARCEVA [Suspect]
     Indication: LUNG ADENOCARCINOMA
     Dosage: 150 MG, UID/QD, ORAL
     Route: 048
     Dates: start: 20101225, end: 20110421
  5. VOLTAREN [Concomitant]
  6. NAUZELIN (DOMPERIDONE) [Concomitant]
  7. EXCELASE (MEILASE/ORIPASE/PANCREATIC ENZYME/PROCTASE/SANACTASE) [Concomitant]

REACTIONS (17)
  - ACUTE RESPIRATORY DISTRESS SYNDROME [None]
  - MALAISE [None]
  - VOMITING [None]
  - HYPOAESTHESIA [None]
  - CARBON DIOXIDE INCREASED [None]
  - BACK PAIN [None]
  - ASTHENIA [None]
  - CARDIOMEGALY [None]
  - ATROPHY [None]
  - ASPARTATE AMINOTRANSFERASE INCREASED [None]
  - LUNG DISORDER [None]
  - INTERSTITIAL LUNG DISEASE [None]
  - BLOOD LACTATE DEHYDROGENASE INCREASED [None]
  - ALANINE AMINOTRANSFERASE INCREASED [None]
  - CARDIO-RESPIRATORY ARREST [None]
  - WHITE BLOOD CELL COUNT INCREASED [None]
  - INFECTION [None]
